FAERS Safety Report 16508945 (Version 1)
Quarter: 2019Q3

REPORT INFORMATION
  Report Type: Spontaneous
  Country: CA (occurrence: CA)
  Receive Date: 20190701
  Receipt Date: 20190701
  Transmission Date: 20191004
  Serious: Yes (Other)
  Sender: FDA-Public Use
  Company Number: CA-TEVA-2019-CA-1068346

PATIENT
  Age: 48 Year
  Sex: Female

DRUGS (4)
  1. DOXORUBICIN [Suspect]
     Active Substance: DOXORUBICIN
     Route: 065
  2. ETOPOSIDE. [Suspect]
     Active Substance: ETOPOSIDE
     Route: 065
  3. CISPLATIN. [Suspect]
     Active Substance: CISPLATIN
     Route: 065
  4. MITOTANE [Suspect]
     Active Substance: MITOTANE
     Route: 065

REACTIONS (4)
  - Hepatic cancer metastatic [Unknown]
  - Pulmonary mass [Unknown]
  - Adrenocortical carcinoma [Unknown]
  - Hepatic enzyme increased [Recovering/Resolving]
